FAERS Safety Report 4192319 (Version 3)
Quarter: 2020Q4

REPORT INFORMATION
  Report Type: Spontaneous
  Country: AU (occurrence: AU)
  Receive Date: 20040811
  Receipt Date: 20201016
  Transmission Date: 20210114
  Serious: Yes (Hospitalization)
  Sender: FDA-Public Use
  Company Number: AU-JNJFOC-20040800408

PATIENT
  Age: 4 Year
  Sex: Female
  Weight: 20 kg

DRUGS (3)
  1. PANADOL [Suspect]
     Active Substance: ACETAMINOPHEN
     Indication: OTITIS MEDIA
     Dosage: 2.88 G OVER 17 HOURS
     Dates: start: 19960709, end: 19960710
  2. CEFACLOR. [Concomitant]
     Active Substance: CEFACLOR
     Indication: OTITIS MEDIA
     Dates: start: 19960706
  3. PARACETAMOL [Suspect]
     Active Substance: ACETAMINOPHEN
     Indication: OTITIS MEDIA
     Dosage: APPROXIMATELY 2400 MG OVER 72 HOURS IN DIVIDED DOSES
     Route: 048
     Dates: start: 19960706, end: 19960709

REACTIONS (8)
  - Prothrombin level increased [Recovered/Resolved]
  - Vomiting [Recovered/Resolved]
  - Abdominal pain [Recovered/Resolved]
  - Acute hepatic failure [Recovered/Resolved]
  - Hypoxia [Recovered/Resolved]
  - Hyperbilirubinaemia [Recovered/Resolved]
  - Overdose [Recovered/Resolved]
  - Hypotension [Recovered/Resolved]

NARRATIVE: CASE EVENT DATE: 19960706
